FAERS Safety Report 7746264-8 (Version None)
Quarter: 2011Q3

REPORT INFORMATION
  Report Type: 
  Country: None (occurrence: None)
  Receive Date: 20110913
  Receipt Date: 20110908
  Transmission Date: 20111222
  Serious: Yes (Life-Threatening)
  Sender: FDA-Public Use
  Company Number: FR-ROCHE-801778

PATIENT
  Age: 80 Year
  Sex: Female

DRUGS (4)
  1. LEUCOVORIN CALCIUM [Concomitant]
  2. IRINOTECAN HCL [Concomitant]
  3. AVASTIN [Suspect]
     Route: 065
     Dates: start: 20110526
  4. FLUOROURACIL [Concomitant]

REACTIONS (2)
  - RENAL FAILURE [None]
  - MICROANGIOPATHY [None]
